FAERS Safety Report 21243589 (Version 2)
Quarter: 2022Q3

REPORT INFORMATION
  Report Type: Report from Study
  Country: US (occurrence: US)
  Receive Date: 20220823
  Receipt Date: 20220909
  Transmission Date: 20221027
  Serious: Yes (Hospitalization)
  Sender: FDA-Public Use
  Company Number: US-EXELIXIS-CABO-22055117

PATIENT
  Sex: Female
  Weight: 58 kg

DRUGS (1)
  1. CABOMETYX [Suspect]
     Active Substance: CABOZANTINIB S-MALATE
     Indication: Renal cancer
     Dosage: 60 MG, QD
     Route: 048

REACTIONS (4)
  - Aortic valve disease [Unknown]
  - Blood sodium decreased [Recovered/Resolved]
  - Anaemia [Unknown]
  - Diarrhoea [Unknown]
